FAERS Safety Report 4847707-X (Version None)
Quarter: 2005Q4

REPORT INFORMATION
  Report Type: 
  Country: None (occurrence: None)
  Receive Date: 20051205
  Receipt Date: 20051121
  Transmission Date: 20060501
  Serious: Yes (Hospitalization)
  Sender: FDA-Public Use
  Company Number: 12917

PATIENT
  Age: 85 Year
  Sex: Male
  Weight: 66 kg

DRUGS (7)
  1. CARBOPLATIN [Suspect]
     Indication: LUNG NEOPLASM MALIGNANT
     Dosage: 210 MG DAILY IV
     Route: 042
     Dates: start: 20040225, end: 20040225
  2. ETOPOSIDE [Suspect]
     Indication: LUNG NEOPLASM MALIGNANT
     Dosage: 390 MG DAILY IV
     Route: 042
     Dates: start: 20040225, end: 20040227
  3. LANOXIN [Concomitant]
  4. OMEPRAZOLE [Concomitant]
  5. FRUSEMIDE [Concomitant]
  6. CARBAMAZEPINE [Concomitant]
  7. SERETIDE [Concomitant]

REACTIONS (2)
  - NAUSEA [None]
  - ORAL INTAKE REDUCED [None]
